FAERS Safety Report 8828293 (Version 1)
Quarter: 2012Q4

REPORT INFORMATION
  Report Type: 
  Country: SG (occurrence: SG)
  Receive Date: 20121005
  Receipt Date: 20121005
  Transmission Date: 20130627
  Serious: Yes (Other)
  Sender: FDA-Public Use
  Company Number: SG-ABBOTT-12P-141-0989809-00

PATIENT
  Age: 14 Year
  Sex: Female

DRUGS (1)
  1. KLACID [Suspect]

REACTIONS (1)
  - Periorbital oedema [Unknown]
